FAERS Safety Report 6928776 (Version 6)
Quarter: 2021Q2

REPORT INFORMATION
  Report Type: Spontaneous
  Country: CH (occurrence: CH)
  Receive Date: 20090305
  Receipt Date: 20210420
  Transmission Date: 20210717
  Serious: Yes (Hospitalization)
  Sender: FDA-Public Use
  Company Number: CH-PFIZER INC-2009174270

PATIENT
  Age: 32 Year
  Sex: Female

DRUGS (2)
  1. SERTRALINE HCL [Suspect]
     Active Substance: SERTRALINE HYDROCHLORIDE
     Dosage: 50 MG, DAILY
  2. ALPRAZOLAM. [Concomitant]
     Active Substance: ALPRAZOLAM
     Indication: ANXIOLYTIC THERAPY
     Dosage: 0.5 MG, DAILY

REACTIONS (4)
  - Drug ineffective [Recovered/Resolved]
  - Depression [Recovered/Resolved]
  - Catatonia [Recovered/Resolved]
  - Suicidal ideation [Not Recovered/Not Resolved]
